FAERS Safety Report 23291405 (Version 1)
Quarter: 2023Q4

REPORT INFORMATION
  Report Type: Spontaneous
  Country: US (occurrence: US)
  Receive Date: 20231213
  Receipt Date: 20231213
  Transmission Date: 20240110
  Serious: No
  Sender: FDA-Public Use
  Company Number: US-STRIDES ARCOLAB LIMITED-2023SP006215

PATIENT
  Sex: Male

DRUGS (15)
  1. OLANZAPINE [Suspect]
     Active Substance: OLANZAPINE
     Indication: Schizophrenia
     Dosage: UNK
     Route: 065
  2. IVERMECTIN [Concomitant]
     Active Substance: IVERMECTIN
     Indication: COVID-19 prophylaxis
     Dosage: 100 MILLIGRAM/DAY (ESCALATING DAILY DOSES OF IVERMECTIN FOR THE PAST 6 MONTHS (UP TO 100 MG IN THE D
     Route: 065
  3. HERBALS\WITHANIA SOMNIFERA ROOT [Concomitant]
     Active Substance: HERBALS\WITHANIA SOMNIFERA ROOT
     Indication: Supplementation therapy
     Dosage: UNK
     Route: 065
  4. Uva ursi [Concomitant]
     Indication: Supplementation therapy
     Dosage: UNK
     Route: 065
  5. CHI SHAO [Concomitant]
     Indication: Supplementation therapy
     Dosage: UNK
     Route: 065
  6. SERRAPEPTASE [Concomitant]
     Active Substance: SERRAPEPTASE
     Indication: Supplementation therapy
     Dosage: UNK
     Route: 065
  7. Burdock [Concomitant]
     Indication: Supplementation therapy
     Dosage: UNK
     Route: 065
  8. DIETARY SUPPLEMENT\HERBALS [Concomitant]
     Active Substance: DIETARY SUPPLEMENT\HERBALS
     Indication: Supplementation therapy
     Dosage: UNK
     Route: 065
  9. FUCUS VESICULOSUS [Concomitant]
     Active Substance: FUCUS VESICULOSUS
     Indication: Supplementation therapy
     Dosage: UNK
     Route: 065
  10. DANDELION [Concomitant]
     Active Substance: TARAXACUM OFFICINALE POLLEN
     Indication: Supplementation therapy
     Dosage: UNK
     Route: 065
  11. HERBALS [Concomitant]
     Active Substance: HERBALS
     Indication: Supplementation therapy
     Dosage: UNK
     Route: 065
  12. URTICA DIOICA WHOLE [Concomitant]
     Active Substance: URTICA DIOICA WHOLE
     Indication: Supplementation therapy
     Dosage: UNK
     Route: 065
  13. NIACIN [Concomitant]
     Active Substance: NIACIN
     Indication: Supplementation therapy
     Dosage: UNK
     Route: 065
  14. DIETARY SUPPLEMENT [Concomitant]
     Active Substance: DIETARY SUPPLEMENT
     Indication: Supplementation therapy
     Dosage: UNK
     Route: 065
  15. MULLEIN EXTRACT [Concomitant]
     Indication: Supplementation therapy
     Dosage: UNK
     Route: 065

REACTIONS (1)
  - Treatment noncompliance [Unknown]
